FAERS Safety Report 23458286 (Version 1)
Quarter: 2024Q1

REPORT INFORMATION
  Report Type: Spontaneous
  Country: BE (occurrence: BE)
  Receive Date: 20240130
  Receipt Date: 20240130
  Transmission Date: 20240410
  Serious: Yes (Other)
  Sender: FDA-Public Use
  Company Number: BE-SA-SAC20230206000863

PATIENT
  Age: 54 Year
  Sex: Female

DRUGS (1)
  1. TERIFLUNOMIDE [Suspect]
     Active Substance: TERIFLUNOMIDE
     Indication: Relapsing-remitting multiple sclerosis
     Dosage: 14 MG
     Route: 048
     Dates: start: 20220930, end: 202309

REACTIONS (11)
  - Cachexia [Unknown]
  - Cerebral haemorrhage [Not Recovered/Not Resolved]
  - Blood test abnormal [Unknown]
  - Asthenia [Unknown]
  - Myalgia [Unknown]
  - Hypoaesthesia [Unknown]
  - Fatigue [Unknown]
  - Nasopharyngitis [Unknown]
  - Abdominal pain [Unknown]
  - Drug ineffective [Unknown]
  - Central nervous system lesion [Not Recovered/Not Resolved]

NARRATIVE: CASE EVENT DATE: 20230501
